FAERS Safety Report 4898791-9 (Version None)
Quarter: 2006Q1

REPORT INFORMATION
  Report Type: 
  Country: None (occurrence: None)
  Receive Date: 20060105
  Receipt Date: 20051116
  Transmission Date: 20060701
  Serious: Yes (Other)
  Sender: FDA-Public Use
  Company Number: 2005129972

PATIENT
  Age: 62 Year
  Sex: Female

DRUGS (10)
  1. ZMAX [Suspect]
     Indication: CELLULITIS
     Dates: start: 20050912
  2. NORVASC [Concomitant]
  3. TOPROL-XL [Concomitant]
  4. SYNTHROID [Concomitant]
  5. APREMARIN (ESTROGENS CONJUGATED) [Concomitant]
  6. ACIPHEX [Concomitant]
  7. ATROVENT [Concomitant]
  8. ADVAIR DISKUS 100/50 [Concomitant]
  9. MAXAIR [Concomitant]
  10. CALCIUM (CALCIUM) [Concomitant]

REACTIONS (1)
  - URTICARIA [None]
